FAERS Safety Report 4869219-X (Version None)
Quarter: 2005Q4

REPORT INFORMATION
  Report Type: 
  Country: None (occurrence: None)
  Receive Date: 20051230
  Receipt Date: 20051130
  Transmission Date: 20060501
  Serious: Yes (Life-Threatening, Hospitalization)
  Sender: FDA-Public Use
  Company Number: PHHO2005JP18864

PATIENT
  Age: 70 Year
  Sex: Female
  Weight: 60 kg

DRUGS (4)
  1. DIOVAN [Suspect]
     Indication: HYPERTENSION
     Dosage: 80 MG, QD
     Route: 048
     Dates: start: 20030226, end: 20040817
  2. LOCHOL [Concomitant]
     Indication: HYPERCHOLESTEROLAEMIA
     Dates: start: 20010210, end: 20040817
  3. NORVASC [Concomitant]
     Indication: HYPERTENSION
     Dates: start: 20010210, end: 20040817
  4. CARDENALIN [Concomitant]
     Indication: HYPERTENSION
     Dates: start: 20030326, end: 20040817

REACTIONS (5)
  - ANGINA PECTORIS [None]
  - CORONARY ARTERY STENOSIS [None]
  - CORONARY ARTERY SURGERY [None]
  - DISEASE PROGRESSION [None]
  - SENSE OF OPPRESSION [None]
